FAERS Safety Report 5317025-4 (Version None)
Quarter: 2007Q1

REPORT INFORMATION
  Report Type: 
  Country: None (occurrence: None)
  Receive Date: 20070130
  Receipt Date: 20061004
  Transmission Date: 20070707
  Serious: Yes (Other)
  Sender: FDA-Public Use
  Company Number: 200617571US

PATIENT
  Age: 45 Year
  Sex: Female

DRUGS (3)
  1. KETEK [Suspect]
     Indication: SINUSITIS
     Dosage: 800 MG QD PO
     Route: 048
     Dates: start: 20060825, end: 20060829
  2. XANAX [Concomitant]
  3. ORAL CONTRACEPTIVE NOS [Concomitant]

REACTIONS (6)
  - ACCOMMODATION DISORDER [None]
  - DIZZINESS [None]
  - EXTRAOCULAR MUSCLE PARESIS [None]
  - HEADACHE [None]
  - NAUSEA [None]
  - VISION BLURRED [None]
